FAERS Safety Report 6945090-7 (Version None)
Quarter: 2010Q3

REPORT INFORMATION
  Report Type: 
  Country: None (occurrence: None)
  Receive Date: 20100827
  Receipt Date: 20100819
  Transmission Date: 20110219
  Serious: Yes (Hospitalization, Other)
  Sender: FDA-Public Use
  Company Number: US-ASTRAZENECA-2010SE38981

PATIENT
  Age: 74 Year
  Sex: Female
  Weight: 90.7 kg

DRUGS (4)
  1. SYMBICORT [Suspect]
     Route: 055
     Dates: start: 20091101
  2. CYMBALTA [Concomitant]
  3. XOPENEX [Concomitant]
  4. FLEXERIL [Concomitant]

REACTIONS (3)
  - PNEUMONIA [None]
  - PULMONARY OEDEMA [None]
  - TRANSIENT ISCHAEMIC ATTACK [None]
